FAERS Safety Report 8365369-4 (Version None)
Quarter: 2012Q2

REPORT INFORMATION
  Report Type: 
  Country: None (occurrence: None)
  Receive Date: 20120516
  Receipt Date: 20120405
  Transmission Date: 20120825
  Serious: Yes (Other)
  Sender: FDA-Public Use
  Company Number: US-ALLERGAN-1204947US

PATIENT
  Age: 43 Year
  Sex: Female

DRUGS (3)
  1. BOTOX COSMETIC [Suspect]
  2. BOTOX COSMETIC [Suspect]
  3. BOTOX COSMETIC [Suspect]
     Indication: SKIN WRINKLING
     Dosage: 40 UNITS, SINGLE
     Route: 030
     Dates: start: 20120329, end: 20120329

REACTIONS (3)
  - HEPATITIS C VIRUS TEST POSITIVE [None]
  - PRODUCT CONTAMINATION [None]
  - WRONG TECHNIQUE IN DRUG USAGE PROCESS [None]
